FAERS Safety Report 15615985 (Version 5)
Quarter: 2019Q3

REPORT INFORMATION
  Report Type: Report from Study
  Country: BR (occurrence: BR)
  Receive Date: 20181114
  Receipt Date: 20190920
  Transmission Date: 20191004
  Serious: Yes (Death, Hospitalization)
  Sender: FDA-Public Use
  Company Number: BR-ROCHE-2214186

PATIENT
  Age: 72 Year
  Sex: Male
  Weight: 59.9 kg

DRUGS (6)
  1. ADENOSINE. [Concomitant]
     Active Substance: ADENOSINE
     Indication: ATRIAL FLUTTER
     Route: 042
     Dates: start: 20181029, end: 20181029
  2. AMIODARONE [Concomitant]
     Active Substance: AMIODARONE
     Dosage: INFUSION BOMB
     Route: 042
     Dates: start: 20181029, end: 20181030
  3. ATEZOLIZUMAB. [Suspect]
     Active Substance: ATEZOLIZUMAB
     Indication: NON-SMALL CELL LUNG CANCER
     Dosage: DATE OF MOST RECENT DOSE OF ATEZOLIZUMAB OF 1200 MG PRIOR TO SAE ONSET 29/OCT/2018 AT 12:15
     Route: 042
     Dates: start: 20180917
  4. AMIODARONE [Concomitant]
     Active Substance: AMIODARONE
     Indication: ATRIAL FLUTTER
     Route: 042
     Dates: start: 20181029, end: 20181029
  5. SEKI [CLOPERASTINE] [Concomitant]
     Route: 048
     Dates: start: 20181029
  6. CLEXANE [Concomitant]
     Active Substance: ENOXAPARIN SODIUM
     Indication: PROPHYLAXIS
     Route: 042
     Dates: start: 20181030, end: 20181030

REACTIONS (1)
  - Respiratory failure [Fatal]

NARRATIVE: CASE EVENT DATE: 20181108
